FAERS Safety Report 4630936-8 (Version None)
Quarter: 2005Q2

REPORT INFORMATION
  Report Type: 
  Country: None (occurrence: None)
  Receive Date: 20050407
  Receipt Date: 20050407
  Transmission Date: 20051028
  Serious: Yes (Hospitalization)
  Sender: FDA-Public Use
  Company Number: None

PATIENT
  Age: 83 Year
  Sex: Male
  Weight: 44.8 kg

DRUGS (2)
  1. OXACILLIN [Suspect]
     Indication: UROSEPSIS
     Dosage: 3G, 1G Q8H, INTRAVEN
     Route: 042
     Dates: start: 20050303, end: 20050304
  2. PIPERACILLIN/TAZOBACT [Concomitant]

REACTIONS (1)
  - RASH [None]
